FAERS Safety Report 8693116 (Version 2)
Quarter: 2012Q4

REPORT INFORMATION
  Report Type: 
  Country: DE (occurrence: DE)
  Receive Date: 20120730
  Receipt Date: 20120907
  Transmission Date: 20130627
  Serious: Yes (Other)
  Sender: FDA-Public Use
  Company Number: DE-ROCHE-1092982

PATIENT
  Sex: Male
  Weight: 86 kg

DRUGS (9)
  1. CELLCEPT [Suspect]
     Indication: RENAL TRANSPLANT
     Route: 048
     Dates: start: 20111231
  2. ADVAGRAF [Suspect]
     Indication: RENAL TRANSPLANT
     Route: 048
     Dates: start: 201202
  3. PREDNISOLON [Concomitant]
     Route: 065
  4. SPIRONOLACTON [Concomitant]
  5. FUROSEMIDE [Concomitant]
  6. AMLODIPIN [Concomitant]
  7. RAMIPRIL [Concomitant]
  8. FORMOTEROL [Concomitant]
     Indication: CHRONIC OBSTRUCTIVE PULMONARY DISEASE
  9. SPIRIVA [Concomitant]
     Indication: CHRONIC OBSTRUCTIVE PULMONARY DISEASE

REACTIONS (4)
  - Respiratory failure [Unknown]
  - Capillary leak syndrome [Unknown]
  - Pulmonary oedema [Unknown]
  - Cardiac failure [Recovered/Resolved]
